FAERS Safety Report 17878549 (Version 1)
Quarter: 2020Q2

REPORT INFORMATION
  Report Type: Spontaneous
  Country: FR (occurrence: FR)
  Receive Date: 20200610
  Receipt Date: 20200610
  Transmission Date: 20200714
  Serious: Yes (Hospitalization)
  Sender: FDA-Public Use
  Company Number: FR-ROCHE-2614448

PATIENT
  Age: 80 Year
  Sex: Female
  Weight: 86 kg

DRUGS (13)
  1. CHONDROSULF [Concomitant]
     Active Substance: CHONDROITIN SULFATE (CHICKEN)
     Route: 048
  2. NIFEDIPINE. [Concomitant]
     Active Substance: NIFEDIPINE
     Route: 048
  3. CALCIDOSE VITAMINE D [Concomitant]
     Active Substance: CALCIUM\CHOLECALCIFEROL
     Route: 048
  4. DIFFU K [Concomitant]
     Active Substance: POTASSIUM CHLORIDE
     Route: 048
  5. HERCEPTIN [Suspect]
     Active Substance: TRASTUZUMAB
     Indication: ENDOMETRIAL ADENOCARCINOMA
     Route: 041
     Dates: start: 20160106, end: 20160511
  6. SETOFILM [Concomitant]
     Active Substance: ONDANSETRON
     Indication: PROPHYLAXIS OF NAUSEA AND VOMITING
     Route: 048
     Dates: start: 20200326, end: 20200328
  7. PACLITAXEL. [Concomitant]
     Active Substance: PACLITAXEL
     Indication: ENDOMETRIAL ADENOCARCINOMA
     Route: 041
     Dates: start: 20200327, end: 20200403
  8. VENLAFAXINE [Concomitant]
     Active Substance: VENLAFAXINE HYDROCHLORIDE
     Route: 048
  9. PANTOPRAZOLE [Concomitant]
     Active Substance: PANTOPRAZOLE
     Route: 048
  10. HERCEPTIN [Suspect]
     Active Substance: TRASTUZUMAB
     Indication: ENDOMETRIAL ADENOCARCINOMA
     Route: 041
     Dates: start: 20200327
  11. FUROSEMIDE. [Concomitant]
     Active Substance: FUROSEMIDE
     Route: 048
  12. KADCYLA [Suspect]
     Active Substance: ADO-TRASTUZUMAB EMTANSINE
     Indication: ENDOMETRIAL ADENOCARCINOMA
     Dosage: MOST RECENT DOSE WAS ADMINISTERED ON 09/JUN/2017.
     Route: 041
     Dates: start: 20160602
  13. EXEMESTANE. [Concomitant]
     Active Substance: EXEMESTANE
     Indication: BREAST CANCER
     Route: 048
     Dates: end: 20200312

REACTIONS (2)
  - Cold agglutinins positive [Not Recovered/Not Resolved]
  - Haemolytic anaemia [Not Recovered/Not Resolved]

NARRATIVE: CASE EVENT DATE: 20200325
